FAERS Safety Report 24749263 (Version 1)
Quarter: 2024Q4

REPORT INFORMATION
  Report Type: Spontaneous
  Country: ES (occurrence: ES)
  Receive Date: 20241218
  Receipt Date: 20241218
  Transmission Date: 20250115
  Serious: Yes (Hospitalization)
  Sender: DR REDDYS
  Company Number: None

PATIENT
  Age: 48 Year
  Sex: Female

DRUGS (2)
  1. DAPTOMYCIN [Suspect]
     Active Substance: DAPTOMYCIN
     Indication: Infection
     Dosage: /DIA
     Route: 042
     Dates: start: 20240105, end: 20240116
  2. MEROPENEM [Suspect]
     Active Substance: MEROPENEM
     Indication: Toxic shock syndrome streptococcal
     Dosage: 1GR/8H
     Route: 042
     Dates: start: 20240106, end: 20240118

REACTIONS (1)
  - Hepatitis acute [Recovered/Resolved]

NARRATIVE: CASE EVENT DATE: 20240117
